FAERS Safety Report 8493946-9 (Version None)
Quarter: 2012Q3

REPORT INFORMATION
  Report Type: 
  Country: None (occurrence: None)
  Receive Date: 20120709
  Receipt Date: 20120629
  Transmission Date: 20120928
  Serious: Yes (Death, Other)
  Sender: FDA-Public Use
  Company Number: US-AMGEN-USASP2011065703

PATIENT
  Age: 75 Year
  Sex: Male
  Weight: 54.4 kg

DRUGS (4)
  1. XANAX [Concomitant]
     Dosage: 0.5 MG, PRN
  2. NPLATE [Suspect]
     Indication: IDIOPATHIC THROMBOCYTOPENIC PURPURA
     Dosage: 220 MUG, ONE TIME DOSE
     Route: 058
     Dates: start: 20110421, end: 20110512
  3. DOCUSATE [Concomitant]
     Dosage: 100 MG, TID
     Route: 048
  4. METRONIDAZOLE [Concomitant]
     Dosage: 500 MG, TID
     Route: 048

REACTIONS (6)
  - NON-HODGKIN'S LYMPHOMA REFRACTORY [None]
  - DRUG INEFFECTIVE [None]
  - CONSTIPATION [None]
  - FALL [None]
  - ASTHENIA [None]
  - DIARRHOEA [None]
